FAERS Safety Report 4968842-1 (Version None)
Quarter: 2006Q2

REPORT INFORMATION
  Report Type: 
  Country: None (occurrence: None)
  Receive Date: 20060411
  Receipt Date: 20060330
  Transmission Date: 20061013
  Serious: Yes (Hospitalization, Other)
  Sender: FDA-Public Use
  Company Number: PHBS2006IT04975

PATIENT
  Age: 16 Year
  Sex: Male

DRUGS (3)
  1. CYCLOSPORINE [Suspect]
     Indication: BRUTON'S AGAMMAGLOBULINAEMIA
     Dosage: 4 MG/KG/DAY
     Route: 065
     Dates: start: 20010101
  2. DEFLAZACORT [Concomitant]
     Dosage: 0.5 MG/KG/DAY
     Dates: start: 20010101
  3. DEFLAZACORT [Concomitant]
     Dosage: 0.2 MG/KG/DAY

REACTIONS (12)
  - BLOOD GASES ABNORMAL [None]
  - BRONCHOPNEUMONIA [None]
  - C-REACTIVE PROTEIN INCREASED [None]
  - COUGH [None]
  - CUTANEOUS VASCULITIS [None]
  - DYSPNOEA [None]
  - INFLAMMATION [None]
  - LEUKOCYTOSIS [None]
  - PNEUMOCYSTIS JIROVECI PNEUMONIA [None]
  - PULMONARY FIBROSIS [None]
  - PYREXIA [None]
  - RED BLOOD CELL SEDIMENTATION RATE INCREASED [None]
